FAERS Safety Report 7989444-9 (Version None)
Quarter: 2011Q4

REPORT INFORMATION
  Report Type: 
  Country: None (occurrence: None)
  Receive Date: 20111215
  Receipt Date: 20111205
  Transmission Date: 20120403
  Serious: Yes (Other)
  Sender: FDA-Public Use
  Company Number: KAD201112-000090

PATIENT
  Sex: Male

DRUGS (11)
  1. VICTRELIS [Suspect]
     Dosage: 200 MG, FOUR CAPSULES, TID, PO
     Route: 048
  2. PROZAC [Concomitant]
  3. RIBAVIRIN [Suspect]
     Dosage: 1000/DAY
  4. LEVOXYL [Concomitant]
  5. TRAZODONE HCL [Concomitant]
  6. PEGASYS [Suspect]
     Dosage: 180 MCG
  7. PRAVASTATIN [Concomitant]
  8. NEUPOGEN [Concomitant]
  9. PROCRIT [Concomitant]
  10. AMBIEN [Concomitant]
  11. VITAMIN D [Concomitant]

REACTIONS (6)
  - WHITE BLOOD CELL COUNT DECREASED [None]
  - DEPRESSION [None]
  - RED BLOOD CELL COUNT DECREASED [None]
  - COUGH [None]
  - DYSPHONIA [None]
  - DYSPNOEA [None]
